FAERS Safety Report 5281339-7 (Version None)
Quarter: 2007Q1

REPORT INFORMATION
  Report Type: 
  Country: None (occurrence: None)
  Receive Date: 20070330
  Receipt Date: 20070327
  Transmission Date: 20070707
  Serious: No
  Sender: FDA-Public Use
  Company Number: FI-BAXTER-2007BH003038

PATIENT
  Age: 63 Year
  Sex: Female

DRUGS (7)
  1. IMMUNE GLOBULIN INTRAVENOUS (HUMAN) [Suspect]
     Indication: BLOOD IMMUNOGLOBULIN G DECREASED
     Route: 042
     Dates: start: 20070227, end: 20070227
  2. IMMUNE GLOBULIN INTRAVENOUS (HUMAN) [Suspect]
     Indication: RESPIRATORY TRACT INFECTION
     Route: 042
     Dates: start: 20070227, end: 20070227
  3. DILTIAZEM HYDROCHLORIDE [Concomitant]
  4. DIUREX [Concomitant]
  5. DIFORMIN [Concomitant]
  6. ZINACEF /UNK/ [Concomitant]
  7. ROXIBION [Concomitant]

REACTIONS (5)
  - BLOOD PRESSURE DECREASED [None]
  - CHEST DISCOMFORT [None]
  - CHILLS [None]
  - HYPERHIDROSIS [None]
  - MALAISE [None]
